FAERS Safety Report 7245618-6 (Version None)
Quarter: 2011Q1

REPORT INFORMATION
  Report Type: 
  Country: None (occurrence: None)
  Receive Date: 20110126
  Receipt Date: 20110114
  Transmission Date: 20110831
  Serious: Yes (Hospitalization)
  Sender: FDA-Public Use
  Company Number: PHHY2011IT05061

PATIENT
  Sex: Female

DRUGS (3)
  1. BROMAZEPAM [Suspect]
  2. ALPRAZOLAM [Suspect]
  3. LORAZEPAM [Suspect]

REACTIONS (2)
  - BRADYKINESIA [None]
  - BRADYPHRENIA [None]
